FAERS Safety Report 5794027-5 (Version None)
Quarter: 2008Q2

REPORT INFORMATION
  Report Type: 
  Country: None (occurrence: None)
  Receive Date: 20080627
  Receipt Date: 20080620
  Transmission Date: 20081010
  Serious: Yes (Other)
  Sender: FDA-Public Use
  Company Number: JP-PFIZER INC-2008027349

PATIENT
  Age: 54 Year
  Sex: Male

DRUGS (10)
  1. LIPITOR [Suspect]
     Indication: LIPIDS ABNORMAL
     Route: 048
     Dates: start: 20071102, end: 20080507
  2. ALDACTONE [Concomitant]
     Route: 048
  3. FIBRATES [Concomitant]
  4. NORVASC [Concomitant]
     Route: 048
  5. LASIX [Concomitant]
     Route: 048
  6. EUGLUCON [Concomitant]
     Route: 048
  7. BLOPRESS [Concomitant]
     Route: 048
  8. MELBIN [Concomitant]
     Route: 048
  9. BEZATOL [Concomitant]
     Route: 048
     Dates: start: 20070906, end: 20071102
  10. CARVEDILOL [Concomitant]
     Dosage: DAILY DOSE:5MG-FREQ:DAILY
     Route: 048

REACTIONS (1)
  - DIABETES MELLITUS [None]
